FAERS Safety Report 9672040 (Version 3)
Quarter: 2013Q4

REPORT INFORMATION
  Report Type: Spontaneous
  Country: JP (occurrence: JP)
  Receive Date: 20131106
  Receipt Date: 20131127
  Transmission Date: 20140711
  Serious: Yes (Hospitalization)
  Sender: FDA-Public Use
  Company Number: JP-GLAXOSMITHKLINE-B0939513A

PATIENT
  Age: 85 Year
  Sex: Female
  Weight: 50 kg

DRUGS (3)
  1. VALTREX [Suspect]
     Indication: HERPES ZOSTER
     Dosage: 1000MG THREE TIMES PER DAY
     Route: 048
     Dates: start: 20131022, end: 20131024
  2. HERBESSER R [Concomitant]
     Indication: HYPERTENSION
     Dosage: 100MG PER DAY
     Route: 048
  3. DIOVAN [Concomitant]
     Indication: HYPERTENSION
     Dosage: 80MG PER DAY
     Route: 048

REACTIONS (5)
  - Renal impairment [Recovered/Resolved]
  - Dysarthria [Recovered/Resolved]
  - Personality change [Recovered/Resolved]
  - Nervous system disorder [Recovered/Resolved]
  - Dehydration [Unknown]
